FAERS Safety Report 5089579-7 (Version None)
Quarter: 2006Q3

REPORT INFORMATION
  Report Type: 
  Country: None (occurrence: None)
  Receive Date: 20060822
  Receipt Date: 20060809
  Transmission Date: 20061208
  Serious: Yes (Disabling, Other)
  Sender: FDA-Public Use
  Company Number: 2006098458

PATIENT
  Age: 48 Year
  Sex: Male

DRUGS (3)
  1. CELEBREX [Suspect]
     Indication: ARTHROPATHY
     Dosage: 200 MG, ORAL
     Route: 048
     Dates: start: 20030101
  2. CELEBREX [Suspect]
     Indication: BACK INJURY
     Dosage: 200 MG, ORAL
     Route: 048
     Dates: start: 20030101
  3. CELEBREX [Suspect]
     Indication: NECK INJURY
     Dosage: 200 MG, ORAL
     Route: 048
     Dates: start: 20030101

REACTIONS (8)
  - ASTHENIA [None]
  - CARDIOVASCULAR DISORDER [None]
  - DIZZINESS [None]
  - FACIAL PALSY [None]
  - FATIGUE [None]
  - MOTOR DYSFUNCTION [None]
  - MYOCARDIAL INFARCTION [None]
  - NAUSEA [None]
